FAERS Safety Report 7111350-2 (Version None)
Quarter: 2010Q4

REPORT INFORMATION
  Report Type: 
  Country: None (occurrence: None)
  Receive Date: 20101118
  Receipt Date: 20101110
  Transmission Date: 20110411
  Serious: Yes (Other)
  Sender: FDA-Public Use
  Company Number: US-PFIZER INC-2010145198

PATIENT
  Sex: Female
  Weight: 68.027 kg

DRUGS (6)
  1. AROMASIN [Suspect]
     Indication: BREAST CANCER
     Dosage: 25 MG, DAILY
     Route: 048
     Dates: start: 20071201
  2. METOPROLOL [Concomitant]
     Indication: BLOOD PRESSURE INCREASED
     Dosage: UNK
  3. LISINOPRIL [Concomitant]
     Indication: BLOOD PRESSURE INCREASED
     Dosage: UNK
  4. CUMADIN [Concomitant]
     Indication: ANTICOAGULANT THERAPY
     Dosage: UNK
  5. CALCIUM [Concomitant]
     Dosage: UNK
  6. VITAMIN D [Concomitant]
     Dosage: UNK

REACTIONS (6)
  - ALOPECIA [None]
  - BLOOD PRESSURE INADEQUATELY CONTROLLED [None]
  - BODY HEIGHT DECREASED [None]
  - CARDIAC OPERATION [None]
  - HEAD TITUBATION [None]
  - HEARING IMPAIRED [None]
